FAERS Safety Report 9732895 (Version 1)
Quarter: 2013Q4

REPORT INFORMATION
  Report Type: Spontaneous
  Country: US (occurrence: US)
  Receive Date: 20131204
  Receipt Date: 20131204
  Transmission Date: 20140711
  Serious: No
  Sender: FDA-Public Use
  Company Number: US-GILEAD-2009-0022148

PATIENT
  Age: 61 Year
  Sex: Female

DRUGS (7)
  1. PRAVACHOL [Concomitant]
     Indication: HYPERLIPIDAEMIA
     Dates: start: 20080813
  2. PREDNISONE [Concomitant]
     Indication: ASTHMA
     Dates: start: 20090106
  3. MICRO-K [Concomitant]
     Indication: BLOOD POTASSIUM DECREASED
     Dates: start: 20081008
  4. METFORMIN [Concomitant]
     Indication: DIABETES MELLITUS
     Dates: start: 20050707
  5. PREVACID [Concomitant]
     Indication: GASTROOESOPHAGEAL REFLUX DISEASE
     Dates: start: 20090305
  6. LETAIRIS [Suspect]
     Indication: COR PULMONALE ACUTE
     Route: 048
     Dates: start: 20090422
  7. LASIX [Concomitant]
     Indication: HYPERTENSION
     Dates: start: 20081008

REACTIONS (2)
  - Thrombocytopenia [Not Recovered/Not Resolved]
  - Anaemia [Not Recovered/Not Resolved]
